FAERS Safety Report 16609949 (Version 1)
Quarter: 2019Q3

REPORT INFORMATION
  Report Type: Spontaneous
  Country: US (occurrence: US)
  Receive Date: 20190722
  Receipt Date: 20190722
  Transmission Date: 20191004
  Serious: Yes (Hospitalization, Other)
  Sender: FDA-Public Use
  Company Number: US-PFIZER INC-2019308922

PATIENT
  Age: 59 Year
  Sex: Male

DRUGS (3)
  1. VORICONAZOLE. [Suspect]
     Active Substance: VORICONAZOLE
     Indication: FUNGAL INFECTION
     Dosage: UNK
  2. ICLUSIG [Suspect]
     Active Substance: PONATINIB
     Indication: ACUTE LYMPHOCYTIC LEUKAEMIA
     Dosage: 45 MG, 1X/DAY
     Route: 048
     Dates: start: 201901
  3. ICLUSIG [Suspect]
     Active Substance: PONATINIB
     Dosage: 30 MG, 1X/DAY
     Route: 048
     Dates: start: 20190222

REACTIONS (7)
  - Neutropenia [Unknown]
  - Blood lactate dehydrogenase increased [Unknown]
  - Platelet count decreased [Unknown]
  - Hallucination [Recovered/Resolved]
  - Serum ferritin increased [Unknown]
  - Muscular weakness [Unknown]
  - Rash [Unknown]

NARRATIVE: CASE EVENT DATE: 201904
